FAERS Safety Report 8932515 (Version 1)
Quarter: 2012Q4

REPORT INFORMATION
  Report Type: Spontaneous
  Country: US (occurrence: None)
  Receive Date: 20121121
  Receipt Date: 20121121
  Transmission Date: 20130627
  Serious: No
  Sender: FDA-Public Use
  Company Number: None

PATIENT
  Sex: Female
  Weight: 46.72 kg

DRUGS (2)
  1. PERFOROMIST [Suspect]
     Indication: ASPERGILLOSIS
     Dosage: 20 mcg/2ml, 2x daily, nebulizer
  2. PERFOROMIST [Suspect]
     Indication: BRONCHIECTASIS
     Dosage: 20 mcg/2ml, 2x daily, nebulizer

REACTIONS (2)
  - Alopecia [None]
  - Alopecia [None]
